FAERS Safety Report 5009921-2 (Version None)
Quarter: 2006Q2

REPORT INFORMATION
  Report Type: 
  Country: None (occurrence: None)
  Receive Date: 20060522
  Receipt Date: 20060516
  Transmission Date: 20061013
  Serious: Yes (Hospitalization)
  Sender: FDA-Public Use
  Company Number: DEWYE630017MAY06

PATIENT
  Age: 15 Year
  Sex: Female

DRUGS (1)
  1. VENLAFAXINE HCL [Suspect]
     Dosage: 10 TABLETS (OVERDOSE AMOUNT 750 MG) ORAL
     Route: 048
     Dates: start: 20060515, end: 20060515

REACTIONS (4)
  - FATIGUE [None]
  - MULTIPLE DRUG OVERDOSE INTENTIONAL [None]
  - MYDRIASIS [None]
  - NYSTAGMUS [None]
